FAERS Safety Report 9524523 (Version 1)
Quarter: 2013Q1

REPORT INFORMATION
  Report Type: Spontaneous
  Country: US (occurrence: None)
  Receive Date: 20130305
  Receipt Date: 20130305
  Transmission Date: 20140127
  Serious: Yes (Other)
  Sender: FDA-Public Use
  Company Number: 163-21880-12021066

PATIENT
  Age: 48 Year
  Sex: Male
  Weight: 125.65 kg

DRUGS (7)
  1. REVLIMID [Suspect]
     Indication: PLASMA CELL MYELOMA
     Dosage: 10 MG, DAILY 3 WEEKS ON 1 WEEK OFF, PO
     Route: 048
     Dates: start: 20120123, end: 20120127
  2. DECADRON [Concomitant]
  3. VELCADE (UNKNOWN) [Concomitant]
  4. BISPHOSPHANATE (UNKNOWN)? [Concomitant]
  5. VICODIN (VICODIN) (UNKNOWN) [Concomitant]
  6. VALTREX (VALACICLOVIR HYDROCHLORIDE) (UNKNOWN) [Concomitant]
  7. LOVENOX (HEPARIN-FRACTION, SODIUM SALT) (UNKNOWN) [Concomitant]

REACTIONS (4)
  - Deep vein thrombosis [None]
  - Hypoaesthesia [None]
  - Insomnia [None]
  - Constipation [None]
